FAERS Safety Report 19071403 (Version 2)
Quarter: 2021Q2

REPORT INFORMATION
  Report Type: Spontaneous
  Country: ES (occurrence: ES)
  Receive Date: 20210330
  Receipt Date: 20210405
  Transmission Date: 20210717
  Serious: No
  Sender: FDA-Public Use
  Company Number: ES-JNJFOC-20210221071

PATIENT
  Sex: Female

DRUGS (1)
  1. SIMPONI [Suspect]
     Active Substance: GOLIMUMAB
     Indication: PRODUCT USED FOR UNKNOWN INDICATION
     Dosage: 50.00 MG / 0.50 ML
     Route: 058

REACTIONS (3)
  - Product dose omission issue [Unknown]
  - Product quality issue [Unknown]
  - Needle issue [Unknown]

NARRATIVE: CASE EVENT DATE: 20210210
